FAERS Safety Report 12456211 (Version 3)
Quarter: 2017Q3

REPORT INFORMATION
  Report Type: Spontaneous
  Country: US (occurrence: US)
  Receive Date: 20160610
  Receipt Date: 20170811
  Transmission Date: 20171127
  Serious: No
  Sender: FDA-Public Use
  Company Number: PHEH2016US014437

PATIENT
  Sex: Female

DRUGS (1)
  1. TASIGNA [Suspect]
     Active Substance: NILOTINIB
     Indication: EXPOSURE VIA PARTNER
     Dosage: FETAL EXPOSURE VIA FATHER. PARTNER DOSE 300 MG BID
     Route: 050

REACTIONS (1)
  - Exposure via partner [Unknown]
